FAERS Safety Report 16844913 (Version 1)
Quarter: 2019Q3

REPORT INFORMATION
  Report Type: Report from Study
  Country: None (occurrence: US)
  Receive Date: 20190924
  Receipt Date: 20190924
  Transmission Date: 20191005
  Serious: Yes (Hospitalization, Other)
  Sender: FDA-Public Use
  Company Number: US-ABBVIE-19K-163-2937160-00

PATIENT
  Age: 65 Year
  Sex: Female

DRUGS (1)
  1. HUMIRA [Suspect]
     Active Substance: ADALIMUMAB
     Indication: CROHN^S DISEASE
     Dosage: CITRATE FREE
     Route: 058
     Dates: start: 20161209

REACTIONS (7)
  - Speech disorder [Unknown]
  - Renal impairment [Unknown]
  - Cholelithiasis [Unknown]
  - Nephrolithiasis [Unknown]
  - Blood creatinine increased [Unknown]
  - Dehydration [Unknown]
  - Tremor [Unknown]

NARRATIVE: CASE EVENT DATE: 2019
